FAERS Safety Report 5074056-X (Version None)
Quarter: 2006Q3

REPORT INFORMATION
  Report Type: 
  Country: None (occurrence: None)
  Receive Date: 20060808
  Receipt Date: 20060523
  Transmission Date: 20061208
  Serious: Yes (Hospitalization)
  Sender: FDA-Public Use
  Company Number: US-SANOFI-SYNTHELABO-F01200601278

PATIENT
  Sex: Female
  Weight: 51.7 kg

DRUGS (18)
  1. DOCETAXEL [Suspect]
     Route: 041
     Dates: start: 20060511, end: 20060511
  2. AVASTIN [Suspect]
     Route: 041
     Dates: start: 20060511, end: 20060511
  3. OXALIPLATIN [Suspect]
     Indication: OVARIAN CANCER
     Route: 041
     Dates: start: 20060511, end: 20060511
  4. BACTRIM [Concomitant]
     Dates: start: 20060516, end: 20060522
  5. COUMADIN [Concomitant]
     Indication: VENA CAVA THROMBOSIS
     Dates: start: 20060519, end: 20060523
  6. PROTONIX [Concomitant]
     Indication: GASTROOESOPHAGEAL REFLUX DISEASE
     Dates: start: 20060503, end: 20060523
  7. CARAFATE [Concomitant]
     Indication: GASTROOESOPHAGEAL REFLUX DISEASE
     Dates: start: 20060503, end: 20060523
  8. POTASSIUM CHLORIDE [Concomitant]
     Indication: HYPOKALAEMIA
     Dates: start: 20060429, end: 20060523
  9. GAS-X [Concomitant]
     Indication: ABDOMINAL DISTENSION
     Dates: start: 20060429, end: 20060523
  10. CLARITIN [Concomitant]
     Indication: RHINITIS ALLERGIC
     Dates: start: 20060420, end: 20060523
  11. IBUPROFEN [Concomitant]
     Indication: PYREXIA
     Dates: start: 20060406, end: 20060523
  12. ARANESP [Concomitant]
     Dates: start: 20060330
  13. PEPCID [Concomitant]
     Dates: start: 20000101, end: 20060523
  14. SENNA S [Concomitant]
     Dates: start: 20060201, end: 20060523
  15. MEGACE [Concomitant]
     Dates: start: 20060308, end: 20060523
  16. MEPERGAN FORTIS [Concomitant]
     Indication: PAIN
     Dates: start: 20060308, end: 20060523
  17. XANAX [Concomitant]
     Indication: ANXIETY
     Dates: start: 20060224, end: 20060523
  18. BETIMOL [Concomitant]
     Indication: GLAUCOMA

REACTIONS (2)
  - COLONIC FISTULA [None]
  - FISTULA [None]
